FAERS Safety Report 9382300 (Version 2)
Quarter: 2013Q3

REPORT INFORMATION
  Report Type: Spontaneous
  Country: US (occurrence: US)
  Receive Date: 20130703
  Receipt Date: 20130710
  Transmission Date: 20140515
  Serious: Yes (Death)
  Sender: FDA-Public Use
  Company Number: US-B.I. PHARMACEUTICALS,INC./RIDGEFIELD-2013-BI-18944BP

PATIENT
  Sex: 0

DRUGS (1)
  1. PRADAXA [Suspect]
     Route: 065

REACTIONS (1)
  - Haemorrhage [Fatal]
